FAERS Safety Report 6317949-5 (Version None)
Quarter: 2009Q3

REPORT INFORMATION
  Report Type: 
  Country: None (occurrence: None)
  Receive Date: 20090821
  Receipt Date: 20090819
  Transmission Date: 20100115
  Serious: Yes (Death, Other)
  Sender: FDA-Public Use
  Company Number: US-ASTRAZENECA-2009UW18115

PATIENT
  Age: 90 Year
  Sex: Female

DRUGS (6)
  1. TOPROL-XL [Suspect]
     Indication: HYPERTENSION
     Route: 048
     Dates: start: 20081001, end: 20090601
  2. TOPROL-XL [Suspect]
     Indication: HEART RATE INCREASED
     Route: 048
     Dates: start: 20081001, end: 20090601
  3. TOPROL-XL [Suspect]
     Dosage: CUT 25 MG TABLET INTO QUARTERS FOR LAST DOSE
     Route: 048
     Dates: start: 20090601
  4. TOPROL-XL [Suspect]
     Dosage: CUT 25 MG TABLET INTO QUARTERS FOR LAST DOSE
     Route: 048
     Dates: start: 20090601
  5. CLARITIN [Concomitant]
  6. ASPIRIN [Concomitant]

REACTIONS (4)
  - ANAEMIA [None]
  - DEATH [None]
  - HYPOTENSION [None]
  - LYMPHOMA [None]
